FAERS Safety Report 17667331 (Version 2)
Quarter: 2024Q3

REPORT INFORMATION
  Report Type: Spontaneous
  Country: DE (occurrence: DE)
  Receive Date: 20200414
  Receipt Date: 20240918
  Transmission Date: 20241016
  Serious: Yes (Other)
  Sender: MYLAN
  Company Number: DE-BAXTER-2020BAX005545

PATIENT
  Age: 81 Year
  Sex: Male

DRUGS (24)
  1. PREDNISOLONE [Suspect]
     Active Substance: PREDNISOLONE
     Indication: Diffuse large B-cell lymphoma
     Dosage: 100 MG,MODIFIED R-CHOP REGIMEN WAS ADMINISTERED IN MONTHLY INTERVALS.
     Route: 065
     Dates: start: 2007
  2. PREDNISOLONE [Suspect]
     Active Substance: PREDNISOLONE
     Dosage: 100 MG,MODIFIED R-CHOP REGIMEN IN 100 % DOSING.
     Route: 065
  3. PREDNISOLONE [Suspect]
     Active Substance: PREDNISOLONE
     Dosage: UNK
     Route: 065
  4. PREDNISOLONE [Suspect]
     Active Substance: PREDNISOLONE
     Dosage: MODIFIED R-CHOP REGIMEN WAS ADMINISTERED IN 75 % DOSE REDUCTION; 4 COURSES
     Route: 065
  5. PREDNISOLONE [Suspect]
     Active Substance: PREDNISOLONE
     Dosage: 100 MILLIGRAM, MONTHLY
     Route: 065
     Dates: start: 2007
  6. DOXORUBICIN [Suspect]
     Active Substance: DOXORUBICIN
     Indication: Diffuse large B-cell lymphoma
     Dosage: 20 MILLIGRAM/SQ. METER
     Route: 065
  7. DOXORUBICIN [Suspect]
     Active Substance: DOXORUBICIN
     Dosage: 20 MG/M2,LIPOSOME, MODIFIED R-CHOP REGIMEN IN 100 % DOSING.TOTAL DOSE: 20 MG/M2
     Route: 065
  8. DOXORUBICIN [Suspect]
     Active Substance: DOXORUBICIN
     Dosage: LIPOSOME, MODIFIED R-CHOP REGIMEN WAS ADMINISTERED IN 75 % DOSE REDUCTION; 4 COURSESTOTAL DOSE: 20 M
     Route: 065
  9. DOXORUBICIN [Suspect]
     Active Substance: DOXORUBICIN
     Dosage: 20 MG/M2,QM;MODIFIED R-CHOP REGIMEN WAS ADMINISTERED IN MONTHLY INTERVALS, LIPOSOMETOTAL DOSE: 20 MG
     Route: 065
     Dates: start: 2007
  10. RITUXIMAB [Suspect]
     Active Substance: RITUXIMAB
     Indication: Diffuse large B-cell lymphoma
     Dosage: 375 MG/M2,MODIFIED R-CHOP REGIMEN WAS ADMINISTERED IN MONTHLY INTERVALS.TOTAL DOSE: 375 MG/M2
     Route: 065
  11. RITUXIMAB [Suspect]
     Active Substance: RITUXIMAB
     Dosage: 375 MG/M2,MODIFIED R-CHOP REGIMEN IN 100 % DOSING.TOTAL DOSE: 375 MG/M2
     Route: 065
  12. RITUXIMAB [Suspect]
     Active Substance: RITUXIMAB
     Dosage: 375 MILLIGRAM/SQ. METER, TOTAL
     Route: 065
  13. RITUXIMAB [Suspect]
     Active Substance: RITUXIMAB
     Dosage: 375 MILLIGRAM/SQ. METER, MONTHLY, MODIFIED R-CHOP IN MONTHLY INTERVALS
     Route: 065
     Dates: start: 2007
  14. RITUXIMAB [Suspect]
     Active Substance: RITUXIMAB
     Dosage: MODIFIED R-CHOP REGIMEN WAS ADMINISTERED IN 75 % DOSE REDUCTION; 4 COURSESTOTAL DOSE: 375 MG/M2
     Route: 065
  15. VINCRISTINE [Suspect]
     Active Substance: VINCRISTINE
     Indication: Diffuse large B-cell lymphoma
     Dosage: TOTAL DOSE: 1,40 MG/M2
     Route: 065
  16. VINCRISTINE [Suspect]
     Active Substance: VINCRISTINE
     Dosage: 1.4 MG/M2,MODIFIED R-CHOP REGIMEN IN 100 % DOSING.TOTAL DOSE: 1,40 MG/M2
     Route: 065
  17. VINCRISTINE [Suspect]
     Active Substance: VINCRISTINE
     Dosage: 1.4 MG/M2, MODIFIED R-CHOP REGIMEN WAS ADMINISTERED IN MONTHLY INTERVALS.TOTAL DOSE: 1,40 MG/M2
     Route: 065
  18. VINCRISTINE [Suspect]
     Active Substance: VINCRISTINE
     Dosage: 1.4 MG/M2,QMTOTAL DOSE: 1,40 MG/M2
     Route: 065
     Dates: start: 2007
  19. VINCRISTINE [Suspect]
     Active Substance: VINCRISTINE
     Dosage: MODIFIED R-CHOP REGIMEN WAS ADMINISTERED IN 75 % DOSE REDUCTION; 4 COURSESTOTAL DOSE: 1,40 MG/M2
     Route: 065
  20. CYCLOPHOSPHAMIDE [Suspect]
     Active Substance: CYCLOPHOSPHAMIDE
     Indication: Diffuse large B-cell lymphoma
     Dosage: MODIFIED R-CHOP REGIMEN WAS ADMINISTERED IN 75 % DOSE REDUCTION; 4 COURSESTOTAL DOSE: 750 MG/M2
     Route: 065
  21. CYCLOPHOSPHAMIDE [Suspect]
     Active Substance: CYCLOPHOSPHAMIDE
     Dosage: 750 MG/M2,QM; MODIFIED R-CHOP REGIMEN WAS ADMINISTERED IN MONTHLY INTERVALS.TOTAL DOSE: 750 MG/M2
     Route: 065
     Dates: start: 2007
  22. CYCLOPHOSPHAMIDE [Suspect]
     Active Substance: CYCLOPHOSPHAMIDE
     Dosage: 750 MG/M2, ;MODIFIED R-CHOP REGIMEN WAS ADMINISTERED IN MONTHLY INTERVALS.TOTAL DOSE: 750 MG/M2
     Route: 065
  23. CYCLOPHOSPHAMIDE [Suspect]
     Active Substance: CYCLOPHOSPHAMIDE
     Dosage: 750 MG/M2,MODIFIED R-CHOP REGIMEN IN 100 % DOSING.TOTAL DOSE: 750 MG/M2
     Route: 065
     Dates: start: 2007
  24. CYCLOPHOSPHAMIDE [Suspect]
     Active Substance: CYCLOPHOSPHAMIDE
     Dosage: TOTAL DOSE: 750 MG/M2
     Route: 065

REACTIONS (7)
  - Thrombosis [Unknown]
  - Leukopenia [Unknown]
  - Agitation [Unknown]
  - Extravasation [Unknown]
  - Dizziness [Unknown]
  - Headache [Unknown]
  - Off label use [Unknown]
